FAERS Safety Report 23960455 (Version 1)
Quarter: 2024Q2

REPORT INFORMATION
  Report Type: Other
  Country: US (occurrence: US)
  Receive Date: 20240611
  Receipt Date: 20240611
  Transmission Date: 20240716
  Serious: Yes (Other)
  Sender: FDA-Public Use
  Company Number: US-AMNEAL PHARMACEUTICALS-2024-AMRX-01716

PATIENT

DRUGS (1)
  1. LISDEXAMFETAMINE DIMESYLATE [Suspect]
     Active Substance: LISDEXAMFETAMINE DIMESYLATE
     Indication: Attention deficit hyperactivity disorder
     Dosage: 70 MG
     Route: 065

REACTIONS (26)
  - Intentional self-injury [Unknown]
  - Major depression [Not Recovered/Not Resolved]
  - Depersonalisation/derealisation disorder [Unknown]
  - Head discomfort [Unknown]
  - Chills [Recovered/Resolved]
  - Peripheral swelling [Recovered/Resolved]
  - Joint swelling [Recovered/Resolved]
  - Erythema [Unknown]
  - Feeling hot [Unknown]
  - Dry throat [Unknown]
  - Dysphagia [Unknown]
  - Dissociation [Unknown]
  - Derealisation [Unknown]
  - Dreamy state [Unknown]
  - Impaired work ability [Unknown]
  - Pharyngeal swelling [Unknown]
  - Salivary hyposecretion [Unknown]
  - Visual impairment [Unknown]
  - Insomnia [Unknown]
  - Pruritus [Unknown]
  - Pyrexia [Recovered/Resolved]
  - Somnolence [Unknown]
  - Headache [Recovered/Resolved]
  - Generalised anxiety disorder [Unknown]
  - Drug ineffective [Unknown]
  - Product substitution issue [Unknown]
